FAERS Safety Report 15030602 (Version 1)
Quarter: 2018Q2

REPORT INFORMATION
  Report Type: Spontaneous
  Country: BR (occurrence: BR)
  Receive Date: 20180619
  Receipt Date: 20180619
  Transmission Date: 20180711
  Serious: Yes (Death, Hospitalization)
  Sender: FDA-Public Use
  Company Number: BR-MYLANLABS-2018M1042412

PATIENT
  Age: 34 Year
  Sex: Male

DRUGS (1)
  1. PREDNISONE. [Suspect]
     Active Substance: PREDNISONE
     Indication: COUGH
     Dosage: 40 MG; FOR FOUR MONTHS
     Route: 065

REACTIONS (9)
  - Seizure [Recovering/Resolving]
  - Infectious pleural effusion [Recovering/Resolving]
  - Intentional product misuse [Unknown]
  - Meningitis [Fatal]
  - Disseminated tuberculosis [Fatal]
  - Brain herniation [Fatal]
  - Abnormal behaviour [Recovering/Resolving]
  - Tuberculoma of central nervous system [Fatal]
  - Brain death [Fatal]
